FAERS Safety Report 8934155 (Version 1)
Quarter: 2012Q4

REPORT INFORMATION
  Report Type: Report from Study
  Country: US (occurrence: US)
  Receive Date: 20121129
  Receipt Date: 20121129
  Transmission Date: 20130627
  Serious: Yes (Death, Hospitalization)
  Sender: FDA-Public Use
  Company Number: US-MERCK-1211USA010202

PATIENT
  Age: 66 Year
  Sex: Female
  Weight: 43 kg

DRUGS (8)
  1. TEMOZOLOMIDE [Suspect]
     Indication: GLIOBLASTOMA
     Dosage: 280 mg, qd
     Route: 048
     Dates: start: 20091222, end: 20091226
  2. BEVACIZUMAB [Suspect]
     Indication: GLIOBLASTOMA
     Dosage: 430 mg 1 in2 weeks
     Route: 042
     Dates: start: 20091222, end: 20100105
  3. IRINOTECAN HYDROCHLORIDE [Suspect]
     Indication: GLIOBLASTOMA
     Dosage: 174 mg 1 in 2 weeks
     Route: 042
     Dates: start: 20091222, end: 20100105
  4. KEPRA [Concomitant]
     Dosage: 750 mg, bid
  5. DECADRON (DEXAMETHASONE) [Concomitant]
     Dosage: 4 mg, qid
  6. ASACOL [Concomitant]
     Dosage: 400 mg, bid
  7. ZANTAC [Concomitant]
     Dosage: 150 mg, bid
  8. ESTROGENS (UNSPECIFIED) [Concomitant]
     Dosage: 1 DF, qid

REACTIONS (3)
  - Bacteraemia [Not Recovered/Not Resolved]
  - Pancytopenia [Not Recovered/Not Resolved]
  - Death [Fatal]
